FAERS Safety Report 15838741 (Version 2)
Quarter: 2019Q1

REPORT INFORMATION
  Report Type: Report from Study
  Country: GB (occurrence: GB)
  Receive Date: 20190117
  Receipt Date: 20190312
  Transmission Date: 20190417
  Serious: Yes (Other)
  Sender: FDA-Public Use
  Company Number: GB-JNJFOC-20190112546

PATIENT
  Sex: Female

DRUGS (2)
  1. STELARA [Suspect]
     Active Substance: USTEKINUMAB
     Indication: PSORIASIS
     Route: 058
     Dates: start: 2018
  2. STELARA [Suspect]
     Active Substance: USTEKINUMAB
     Indication: PSORIASIS
     Route: 058
     Dates: start: 20180418

REACTIONS (6)
  - Off label use [Unknown]
  - Road traffic accident [Unknown]
  - Incorrect dose administered [Unknown]
  - Burn infection [Recovered/Resolved]
  - Renal tubular acidosis [Unknown]
  - Influenza [Unknown]

NARRATIVE: CASE EVENT DATE: 2018
